FAERS Safety Report 17680796 (Version 5)
Quarter: 2020Q2

REPORT INFORMATION
  Report Type: Spontaneous
  Country: BR (occurrence: BR)
  Receive Date: 20200417
  Receipt Date: 20200629
  Transmission Date: 20200714
  Serious: Yes (Life-Threatening, Hospitalization, Disabling, Other)
  Sender: FDA-Public Use
  Company Number: BR-SA-2020SA100035

PATIENT

DRUGS (5)
  1. MYOZYME [Suspect]
     Active Substance: ALGLUCOSIDASE ALFA
     Indication: GLYCOGEN STORAGE DISEASE TYPE II
     Dosage: 20 MG/KG, QOW
     Route: 041
     Dates: start: 201912, end: 20200412
  2. FENOBARBITAL [Concomitant]
     Active Substance: PHENOBARBITAL
     Dosage: 3 MG/KG, QD
  3. CARVEDILOL. [Concomitant]
     Active Substance: CARVEDILOL
     Dosage: 0.5 MG/KG, QD
     Dates: start: 20200305
  4. CAPTOPRIL. [Concomitant]
     Active Substance: CAPTOPRIL
     Dosage: 2 MG/KG, QD
     Dates: start: 20200305
  5. FUROSEMIDE. [Concomitant]
     Active Substance: FUROSEMIDE
     Dosage: 4 MG/KG, QD
     Dates: start: 20200305

REACTIONS (3)
  - Central nervous system lesion [Not Recovered/Not Resolved]
  - Cardiac arrest [Not Recovered/Not Resolved]
  - Hypoxic-ischaemic encephalopathy [Unknown]

NARRATIVE: CASE EVENT DATE: 20200229
